FAERS Safety Report 22385911 (Version 1)
Quarter: 2023Q2

REPORT INFORMATION
  Report Type: Spontaneous
  Country: US (occurrence: US)
  Receive Date: 20230530
  Receipt Date: 20230530
  Transmission Date: 20230722
  Serious: Yes (Other)
  Sender: FDA-Public Use
  Company Number: US-SEBELA IRELAND LIMITED-2023SEB00036

PATIENT
  Sex: Female

DRUGS (1)
  1. AZATHIOPRINE [Suspect]
     Active Substance: AZATHIOPRINE
     Dosage: UNK, LOWEST DOSE

REACTIONS (4)
  - Multiple sclerosis [Unknown]
  - Liver injury [Unknown]
  - Renal injury [Unknown]
  - Drug hypersensitivity [Unknown]
